FAERS Safety Report 23941112 (Version 1)
Quarter: 2024Q2

REPORT INFORMATION
  Report Type: Spontaneous
  Country: CN (occurrence: None)
  Receive Date: 20240605
  Receipt Date: 20240605
  Transmission Date: 20240716
  Serious: Yes (Other)
  Sender: FDA-Public Use
  Company Number: 2024A125536

PATIENT
  Age: 85 Year

DRUGS (1)
  1. TAGRISSO [Suspect]
     Active Substance: OSIMERTINIB
     Route: 048

REACTIONS (7)
  - Neoplasm malignant [Unknown]
  - Anxiety [Unknown]
  - Feeding disorder [Unknown]
  - Epistaxis [Unknown]
  - Dyspnoea [Unknown]
  - Drug resistance [Unknown]
  - Weight abnormal [Unknown]
